FAERS Safety Report 9940263 (Version 1)
Quarter: 2014Q1

REPORT INFORMATION
  Report Type: Report from Study
  Country: US (occurrence: US)
  Receive Date: 20140303
  Receipt Date: 20140303
  Transmission Date: 20141002
  Serious: No
  Sender: FDA-Public Use
  Company Number: US-ABBVIE-13P-163-1033891-00

PATIENT
  Age: 31 Year
  Sex: Female

DRUGS (3)
  1. HUMIRA [Suspect]
     Indication: PSORIATIC ARTHROPATHY
     Route: 058
  2. CELEXA [Concomitant]
     Indication: PAIN
     Dosage: 40 MG DAILY
  3. WELLBUTRIN [Concomitant]
     Indication: ANXIETY
     Dosage: 150 MG DAILY

REACTIONS (3)
  - Device malfunction [Recovered/Resolved]
  - Incorrect dose administered [Unknown]
  - Injection site pain [Unknown]
